FAERS Safety Report 8523672-9 (Version None)
Quarter: 2012Q3

REPORT INFORMATION
  Report Type: 
  Country: None (occurrence: None)
  Receive Date: 20120720
  Receipt Date: 20120711
  Transmission Date: 20120928
  Serious: Yes (Hospitalization)
  Sender: FDA-Public Use
  Company Number: US-JNJFOC-20120705909

PATIENT
  Sex: Male

DRUGS (4)
  1. RISPERDAL [Concomitant]
     Route: 048
  2. ZYPREXA [Concomitant]
     Route: 048
  3. INVEGA SUSTENNA [Suspect]
     Indication: PRODUCT USED FOR UNKNOWN INDICATION
     Route: 030
     Dates: start: 20120101
  4. UNKNOWN MEDICATION [Concomitant]
     Route: 065

REACTIONS (2)
  - PARKINSON'S DISEASE [None]
  - DYSTONIA [None]
